FAERS Safety Report 14963591 (Version 2)
Quarter: 2018Q2

REPORT INFORMATION
  Report Type: Spontaneous
  Country: TR (occurrence: TR)
  Receive Date: 20180601
  Receipt Date: 20180611
  Transmission Date: 20180711
  Serious: Yes (Hospitalization)
  Sender: FDA-Public Use
  Company Number: TR-IGSA-SR10006422

PATIENT
  Sex: Female
  Weight: 59 kg

DRUGS (5)
  1. GAMUNEX-C [Suspect]
     Active Substance: HUMAN IMMUNOGLOBULIN G
     Indication: IMMUNODEFICIENCY COMMON VARIABLE
     Dosage: 10 G, Q.WK.
     Route: 058
     Dates: start: 20170329, end: 20180508
  2. GAMUNEX-C [Suspect]
     Active Substance: HUMAN IMMUNOGLOBULIN G
     Dosage: UNK
  3. EUTHYROX [Concomitant]
     Active Substance: LEVOTHYROXINE SODIUM
     Indication: HYPOTHYROIDISM
     Dosage: 100 ?G, QD
     Route: 048
     Dates: start: 2013
  4. AZITRO [Concomitant]
     Active Substance: AZITHROMYCIN
     Indication: PRIMARY IMMUNODEFICIENCY SYNDROME
     Dosage: 500 MG, Q.WK.
     Route: 048
     Dates: start: 20141231
  5. GAMUNEX-C [Suspect]
     Active Substance: HUMAN IMMUNOGLOBULIN G
     Dosage: UNK

REACTIONS (1)
  - Skin mass [Not Recovered/Not Resolved]
